FAERS Safety Report 11272750 (Version 2)
Quarter: 2015Q4

REPORT INFORMATION
  Report Type: Spontaneous
  Country: US (occurrence: FR)
  Receive Date: 20150715
  Receipt Date: 20151015
  Transmission Date: 20160304
  Serious: Yes (Hospitalization)
  Sender: FDA-Public Use
  Company Number: US-PFIZER INC-K200800054

PATIENT
  Age: 55 Year
  Sex: Male

DRUGS (12)
  1. TRIATEC [Suspect]
     Active Substance: RAMIPRIL
     Dosage: 2.5 MG, 1X/DAY
     Route: 048
  2. LANTUS [Suspect]
     Active Substance: INSULIN GLARGINE
     Indication: DIABETES MELLITUS
     Dosage: 26 IU, 1X/DAY
     Route: 058
  3. FUCIDINE /00065702/ [Suspect]
     Active Substance: FUSIDATE SODIUM
     Indication: INFECTION
     Dosage: 1.5 G, 1X/DAY
     Route: 048
  4. TAHOR [Suspect]
     Active Substance: ATORVASTATIN CALCIUM
     Indication: INFARCTION
     Dosage: 40 MG, 1X/DAY
     Route: 048
  5. INEXIUM /01479302/ [Suspect]
     Active Substance: ESOMEPRAZOLE MAGNESIUM
     Dosage: 1 IU, 1X/DAY
     Route: 048
  6. SERESTA [Suspect]
     Active Substance: OXAZEPAM
     Dosage: 50 MG, 1X/DAY
     Route: 048
  7. ACTISKENAN [Suspect]
     Active Substance: MORPHINE SULFATE
     Dosage: UNK, 1X/DAY
     Route: 048
  8. INFLUENZA VIRUS VACCINE /00027001/ [Suspect]
     Active Substance: INFLUENZA VIRUS VACCINE
     Indication: PROPHYLAXIS
     Dosage: 1 IU, SINGLE
     Route: 058
     Dates: start: 20071021, end: 20071021
  9. PREVISCAN /00789001/ [Suspect]
     Active Substance: FLUINDIONE
     Dosage: 15 MG, 1X/DAY
     Route: 048
  10. BACTRIM DS [Suspect]
     Active Substance: SULFAMETHOXAZOLE\TRIMETHOPRIM
     Indication: INFECTION
     Dosage: 1920 MG, 1X/DAY
     Route: 048
  11. LASILIX /00032601/ [Suspect]
     Active Substance: FUROSEMIDE
     Dosage: 80 MG, 1X/DAY
     Route: 048
  12. STILNOX /00914901/ [Suspect]
     Active Substance: ZOLPIDEM TARTRATE
     Dosage: 10 MG, 1X/DAY
     Route: 048

REACTIONS (2)
  - Myalgia [Recovering/Resolving]
  - Rhabdomyolysis [Recovering/Resolving]

NARRATIVE: CASE EVENT DATE: 20071022
